FAERS Safety Report 9061781 (Version 1)
Quarter: 2013Q1

REPORT INFORMATION
  Report Type: Spontaneous
  Country: US (occurrence: None)
  Receive Date: 20130122
  Receipt Date: 20130122
  Transmission Date: 20140127
  Serious: Yes (Death)
  Sender: FDA-Public Use
  Company Number: DSA_61965_2013

PATIENT
  Age: 75 Year
  Sex: Female

DRUGS (2)
  1. DILTIAZEM HYDROCHLORIDE [Suspect]
     Dosage: (DF ORAL)?(UNKNOWN UNTIL NOT CONTINUING)
     Route: 048
  2. PARACETAMOL [Suspect]
     Dosage: (DF ORAL)?(UNKNOWN UNTIL NOT CONTINUING)
     Route: 048

REACTIONS (4)
  - Incorrect dose administered [None]
  - Incorrect route of drug administration [None]
  - Drug dispensing error [None]
  - Wrong drug administered [None]
